FAERS Safety Report 16961295 (Version 2)
Quarter: 2019Q4

REPORT INFORMATION
  Report Type: Spontaneous
  Country: SK (occurrence: SK)
  Receive Date: 20191025
  Receipt Date: 20191101
  Transmission Date: 20200122
  Serious: Yes (Other)
  Sender: FDA-Public Use
  Company Number: SK-REGENERON PHARMACEUTICALS, INC.-2019-61690

PATIENT

DRUGS (4)
  1. EYLEA [Suspect]
     Active Substance: AFLIBERCEPT
     Indication: NEOVASCULAR AGE-RELATED MACULAR DEGENERATION
     Dosage: 1 TO 14TH INJECTION.
     Dates: start: 2013
  2. EYLEA [Suspect]
     Active Substance: AFLIBERCEPT
     Dosage: 36 TO 47TH INJECTION
  3. RANIBIZUMAB. [Concomitant]
     Active Substance: RANIBIZUMAB
     Dosage: 47TH
  4. RANIBIZUMAB. [Concomitant]
     Active Substance: RANIBIZUMAB
     Indication: PRODUCT USED FOR UNKNOWN INDICATION
     Dosage: 15 TO 35TH INJECTION

REACTIONS (4)
  - Visual acuity reduced [Unknown]
  - Tachyphylaxis [Unknown]
  - Retinal thickening [Unknown]
  - Neovascular age-related macular degeneration [Not Recovered/Not Resolved]

NARRATIVE: CASE EVENT DATE: 201910
